FAERS Safety Report 26067904 (Version 1)
Quarter: 2025Q4

REPORT INFORMATION
  Report Type: Spontaneous
  Country: US (occurrence: US)
  Receive Date: 20251120
  Receipt Date: 20251120
  Transmission Date: 20260117
  Serious: No
  Sender: BIOGEN
  Company Number: US-BIOGEN-2091527

PATIENT
  Age: 51 Year
  Sex: Female

DRUGS (9)
  1. VUMERITY [Suspect]
     Active Substance: DIROXIMEL FUMARATE
     Indication: Multiple sclerosis
  2. IBUPROFEN [Concomitant]
     Active Substance: IBUPROFEN
  3. MOUNJARO [Concomitant]
     Active Substance: TIRZEPATIDE
  4. CIMETIDINE [Concomitant]
     Active Substance: CIMETIDINE
  5. VITAMIN D3 [Concomitant]
     Active Substance: CHOLECALCIFEROL
  6. TYLENOL [Concomitant]
     Active Substance: ACETAMINOPHEN
     Dosage: EXTRA STRENGTH
  7. HERBALS [Concomitant]
     Active Substance: HERBALS
  8. LEXAPRO [Concomitant]
     Active Substance: ESCITALOPRAM OXALATE
  9. LOSARTAN POTASSIUM [Concomitant]
     Active Substance: LOSARTAN POTASSIUM

REACTIONS (3)
  - Product dose omission issue [Unknown]
  - Back pain [Unknown]
  - Road traffic accident [Unknown]
